FAERS Safety Report 5563167-8 (Version None)
Quarter: 2007Q4

REPORT INFORMATION
  Report Type: 
  Country: None (occurrence: None)
  Receive Date: 20071217
  Receipt Date: 20071213
  Transmission Date: 20080405
  Serious: Yes (Other)
  Sender: FDA-Public Use
  Company Number: D0048508A

PATIENT
  Sex: Female

DRUGS (4)
  1. VIANI FORTE [Suspect]
     Indication: ASTHMA
     Route: 055
  2. SULTANOL [Suspect]
     Indication: COUGH
     Route: 055
  3. CORTISON [Suspect]
     Route: 048
     Dates: start: 20060101
  4. ANTI-EPILEPTIC MEDICATION [Concomitant]
     Indication: EPILEPSY
     Route: 065

REACTIONS (12)
  - ASTHMA [None]
  - COUGH [None]
  - DRUG DEPENDENCE [None]
  - DYSPHONIA [None]
  - DYSPNOEA [None]
  - FLUID RETENTION [None]
  - GASTRIC DISORDER [None]
  - NEURODERMATITIS [None]
  - RESPIRATORY TRACT INFECTION [None]
  - RHINITIS ALLERGIC [None]
  - SPUTUM ABNORMAL [None]
  - WEIGHT DECREASED [None]
